FAERS Safety Report 23528844 (Version 1)
Quarter: 2024Q1

REPORT INFORMATION
  Report Type: Spontaneous
  Country: US (occurrence: US)
  Receive Date: 20240215
  Receipt Date: 20240215
  Transmission Date: 20240409
  Serious: No
  Sender: FDA-Public Use
  Company Number: US-BAUSCHBL-2024BNL001835

PATIENT
  Age: 70 Year
  Sex: Female
  Weight: 65.77 kg

DRUGS (4)
  1. XIIDRA [Suspect]
     Active Substance: LIFITEGRAST
     Indication: Dry eye
     Dosage: 1 DROP INTO EACH EYE
     Route: 047
     Dates: start: 20240201
  2. TOBRAMYCIN [Suspect]
     Active Substance: TOBRAMYCIN
     Indication: Postoperative care
     Dosage: INTO THE RIGHT EYE TWO OR THREE TIMES PER DAY
     Route: 047
  3. PREDNISONE [Concomitant]
     Active Substance: PREDNISONE
     Indication: Corneal graft rejection
     Dosage: IN THE RIGHT EYE
  4. THERATEARS [Concomitant]
     Active Substance: CARBOXYMETHYLCELLULOSE SODIUM
     Indication: Product used for unknown indication
     Dosage: EVERY 30 MINUTES TO 1 HOUR
     Route: 047

REACTIONS (6)
  - Oral discomfort [Unknown]
  - Stomatitis [Unknown]
  - Visual impairment [Unknown]
  - Metamorphopsia [Unknown]
  - Vision blurred [Unknown]
  - Dysgeusia [Unknown]
